FAERS Safety Report 9684414 (Version 3)
Quarter: 2013Q4

REPORT INFORMATION
  Report Type: Spontaneous
  Country: US (occurrence: US)
  Receive Date: 20131112
  Receipt Date: 20131125
  Transmission Date: 20140711
  Serious: No
  Sender: FDA-Public Use
  Company Number: US-PFIZER INC-2013316883

PATIENT
  Sex: Female

DRUGS (2)
  1. GLUCOTROL [Suspect]
     Dosage: UNK
  2. VICTOZA [Concomitant]
     Indication: BLOOD GLUCOSE INCREASED
     Dosage: UNK

REACTIONS (1)
  - Blood glucose decreased [Unknown]
